FAERS Safety Report 5448842-8 (Version None)
Quarter: 2007Q3

REPORT INFORMATION
  Report Type: 
  Country: None (occurrence: None)
  Receive Date: 20070911
  Receipt Date: 20070716
  Transmission Date: 20080115
  Serious: No
  Sender: FDA-Public Use
  Company Number: US-BRISTOL-MYERS SQUIBB COMPANY-13847140

PATIENT
  Weight: 101 kg

DRUGS (8)
  1. EMSAM [Suspect]
     Route: 062
  2. LAMICTAL [Concomitant]
  3. SEROQUEL [Concomitant]
  4. ABILIFY [Concomitant]
  5. ATENOLOL [Concomitant]
  6. TRIAMTERENE [Concomitant]
  7. CRESTOR [Concomitant]
  8. VIVELLE [Concomitant]

REACTIONS (2)
  - HYPERHIDROSIS [None]
  - INSOMNIA [None]
